FAERS Safety Report 5056245-3 (Version None)
Quarter: 2006Q2

REPORT INFORMATION
  Report Type: 
  Country: None (occurrence: None)
  Receive Date: 20060616
  Receipt Date: 20051212
  Transmission Date: 20061013
  Serious: Yes (Hospitalization)
  Sender: FDA-Public Use
  Company Number: 200520380US

PATIENT
  Age: 58 Year
  Sex: Female
  Weight: 61.3 kg

DRUGS (5)
  1. LANTUS [Suspect]
     Indication: DIABETES MELLITUS
  2. WATER PILL [Concomitant]
  3. THYROID TAB [Concomitant]
  4. BLOOD PRESSURE MEDICATION [Concomitant]
  5. NOVOLOG [Concomitant]

REACTIONS (1)
  - HYPOGLYCAEMIA [None]
